FAERS Safety Report 15320920 (Version 1)
Quarter: 2018Q3

REPORT INFORMATION
  Report Type: Spontaneous
  Country: IT (occurrence: IT)
  Receive Date: 20180827
  Receipt Date: 20180827
  Transmission Date: 20181010
  Serious: Yes (Other)
  Sender: FDA-Public Use
  Company Number: IT-PFIZER INC-2018341504

PATIENT
  Age: 67 Year

DRUGS (7)
  1. RIFADIN [RIFAMPICIN] [Concomitant]
  2. LAEVOLAC [Concomitant]
     Active Substance: LACTULOSE
  3. KAYEXALATE [Suspect]
     Active Substance: SODIUM POLYSTYRENE SULFONATE
     Indication: HYPERKALAEMIA
     Dosage: 2 DF, 1X/DAY
     Route: 048
     Dates: start: 20180316
  4. MERREM [Concomitant]
     Active Substance: MEROPENEM
  5. NORVASC [Suspect]
     Active Substance: AMLODIPINE BESYLATE
     Indication: HYPERTENSION
     Dosage: 5 MG, 1X/DAY
     Route: 048
     Dates: start: 20180316
  6. PERFALGAN [Concomitant]
     Active Substance: ACETAMINOPHEN
  7. CUBICIN [Concomitant]
     Active Substance: DAPTOMYCIN

REACTIONS (1)
  - Anaemia [Recovering/Resolving]

NARRATIVE: CASE EVENT DATE: 20180317
